FAERS Safety Report 12293685 (Version 1)
Quarter: 2016Q2

REPORT INFORMATION
  Report Type: Spontaneous
  Country: US (occurrence: US)
  Receive Date: 20160421
  Receipt Date: 20160421
  Transmission Date: 20160815
  Serious: No
  Sender: FDA-Public Use
  Company Number: GXBR2016US001151

PATIENT
  Age: 52 Year
  Sex: Male
  Weight: 86.17 kg

DRUGS (2)
  1. AMOXICILLIN AND CLAVULANATE POTASSIUM TABLETS USP [Suspect]
     Active Substance: AMOXICILLIN\CLAVULANATE POTASSIUM
     Indication: SINUSITIS
     Dosage: 875MG AMOXICILLIN/125 CLAVULANATE, BID
     Route: 048
     Dates: start: 20160329
  2. ATORVASTATIN [Concomitant]
     Active Substance: ATORVASTATIN
     Indication: BLOOD CHOLESTEROL
     Dosage: UNK DF, UNK

REACTIONS (2)
  - Abdominal discomfort [Recovering/Resolving]
  - Diarrhoea [Recovering/Resolving]

NARRATIVE: CASE EVENT DATE: 20160330
